FAERS Safety Report 14939028 (Version 1)
Quarter: 2018Q2

REPORT INFORMATION
  Report Type: Report from Study
  Country: JP (occurrence: JP)
  Receive Date: 20180525
  Receipt Date: 20180525
  Transmission Date: 20180711
  Serious: Yes (Death, Other)
  Sender: FDA-Public Use
  Company Number: JP-PFIZER INC-2017206943

PATIENT
  Age: 57 Year
  Sex: Male
  Weight: 63 kg

DRUGS (14)
  1. VORICONAZOLE. [Suspect]
     Active Substance: VORICONAZOLE
     Dosage: 300 MG, 1X/DAY
     Route: 048
     Dates: start: 20170118, end: 20170515
  2. LANSOPRAZOLE. [Concomitant]
     Active Substance: LANSOPRAZOLE
     Indication: CHRONIC GASTRITIS
     Dosage: 15 MG, 1X/DAY
     Route: 048
  3. IMBRUVICA [Suspect]
     Active Substance: IBRUTINIB
     Dosage: 140 MG, 1X/DAY
     Route: 048
     Dates: start: 20170118, end: 20170322
  4. VORICONAZOLE. [Suspect]
     Active Substance: VORICONAZOLE
     Dosage: 100 MG, 1X/DAY
     Route: 048
     Dates: start: 20161121, end: 20170117
  5. ALLELOCK [Concomitant]
     Active Substance: OLOPATADINE HYDROCHLORIDE
     Indication: RASH
     Dosage: 10 MG, 1X/DAY
     Route: 048
     Dates: start: 20161005, end: 20161120
  6. ZOSYN [Concomitant]
     Active Substance: PIPERACILLIN SODIUM\TAZOBACTAM SODIUM
     Dosage: 18 G, 1X/DAY
     Route: 065
     Dates: start: 20170325, end: 20170407
  7. FLUCONAZOLE. [Concomitant]
     Active Substance: FLUCONAZOLE
     Indication: PROPHYLAXIS
     Dosage: 100 MG, 1X/DAY
     Route: 048
     Dates: start: 20161120
  8. FEBURIC [Concomitant]
     Active Substance: FEBUXOSTAT
     Indication: HYPERURICAEMIA
     Dosage: 20 MG, 1X/DAY
     Route: 048
  9. SALAGEN [Concomitant]
     Active Substance: PILOCARPINE HYDROCHLORIDE
     Indication: GRAFT VERSUS HOST DISEASE
     Dosage: 15 MG, 1X/DAY
     Route: 048
  10. VORICONAZOLE. [Suspect]
     Active Substance: VORICONAZOLE
     Indication: PROPHYLAXIS
     Dosage: UNK
     Route: 048
     Dates: start: 20160925
  11. IMBRUVICA [Suspect]
     Active Substance: IBRUTINIB
     Indication: B-CELL SMALL LYMPHOCYTIC LYMPHOMA
     Dosage: 420 MG, 1X/DAY
     Route: 048
     Dates: start: 20160925, end: 20161220
  12. ACICLOVIR [Concomitant]
     Active Substance: ACYCLOVIR
     Indication: PROPHYLAXIS
     Dosage: 100 MG, 1X/DAY
     Route: 048
     Dates: start: 20161121, end: 20170117
  13. DIFLUCAN [Suspect]
     Active Substance: FLUCONAZOLE
     Indication: INFECTION PROPHYLAXIS
     Dosage: 100 MG, 1X/DAY
     Route: 048
     Dates: start: 20160925, end: 20161120
  14. GENINAX [Concomitant]
     Active Substance: GARENOXACIN MESYLATE
     Indication: PNEUMONIA BACTERIAL
     Dosage: 400 MG, 1X/DAY
     Route: 048
     Dates: start: 20161221, end: 20161227

REACTIONS (5)
  - B-cell small lymphocytic lymphoma [Fatal]
  - Pneumonia bacterial [Recovered/Resolved]
  - Rash [Recovered/Resolved]
  - Lymphocyte count increased [Recovered/Resolved]
  - Liver abscess [Recovering/Resolving]

NARRATIVE: CASE EVENT DATE: 20161004
